FAERS Safety Report 13795975 (Version 1)
Quarter: 2017Q3

REPORT INFORMATION
  Report Type: Spontaneous
  Country: CA (occurrence: CA)
  Receive Date: 20170726
  Receipt Date: 20170726
  Transmission Date: 20171127
  Serious: Yes (Other)
  Sender: FDA-Public Use
  Company Number: PHHY2017CA082095

PATIENT
  Age: 64 Year
  Sex: Male

DRUGS (10)
  1. APO-AMOXI [Concomitant]
     Active Substance: AMOXICILLIN
     Indication: PRODUCT USED FOR UNKNOWN INDICATION
     Dosage: 1 DF, TID
     Route: 065
     Dates: start: 20170302
  2. AURO-CIPROFLOXACIN [Concomitant]
     Active Substance: CIPROFLOXACIN
     Indication: PRODUCT USED FOR UNKNOWN INDICATION
     Dosage: 1.5 DF, BID
     Route: 065
     Dates: start: 20170306
  3. MAGLUCATE [Concomitant]
     Indication: PRODUCT USED FOR UNKNOWN INDICATION
     Dosage: 2 DF, BID
     Route: 048
     Dates: start: 20170128
  4. NEORAL [Concomitant]
     Active Substance: CYCLOSPORINE
     Indication: PRODUCT USED FOR UNKNOWN INDICATION
     Dosage: 1 DF, BID
     Route: 065
     Dates: start: 20170227
  5. MAGLUCATE [Concomitant]
     Dosage: 2 DF, BID
     Route: 048
     Dates: start: 20170508
  6. MAGLUCATE [Concomitant]
     Dosage: 2 DF, BID
     Route: 048
     Dates: start: 20170610
  7. NEORAL [Concomitant]
     Active Substance: CYCLOSPORINE
     Dosage: 1 DF, BID
     Route: 065
     Dates: start: 20170601
  8. FERAMAX [Concomitant]
     Active Substance: IRON\POLYSACCHARIDES
     Indication: PRODUCT USED FOR UNKNOWN INDICATION
     Dosage: 1 DF, QD
     Route: 065
     Dates: start: 20170309
  9. REVOLADE [Suspect]
     Active Substance: ELTROMBOPAG
     Dosage: 150 MG, UNK
     Route: 048
     Dates: start: 20170614
  10. REVOLADE [Suspect]
     Active Substance: ELTROMBOPAG
     Indication: APLASTIC ANAEMIA
     Dosage: 150 MG, UNK
     Route: 048
     Dates: start: 20140304, end: 20170526

REACTIONS (10)
  - Thrombocytopenia [Unknown]
  - Thrombosis [Unknown]
  - Cytogenetic abnormality [Unknown]
  - Bone marrow failure [Unknown]
  - Blood smear test abnormal [Unknown]
  - Anaemia [Unknown]
  - Granulocytopenia [Unknown]
  - Neutropenia [Unknown]
  - Lymphopenia [Unknown]
  - Poikilocytosis [Unknown]

NARRATIVE: CASE EVENT DATE: 20170502
